FAERS Safety Report 23410531 (Version 1)
Quarter: 2024Q1

REPORT INFORMATION
  Report Type: Spontaneous
  Country: FJ (occurrence: FJ)
  Receive Date: 20240117
  Receipt Date: 20240117
  Transmission Date: 20240410
  Serious: Yes (Death)
  Sender: FDA-Public Use
  Company Number: FJ-002147023-NVSC2024FJ010371

PATIENT
  Age: 32 Year
  Sex: Female

DRUGS (1)
  1. GLIVEC [Suspect]
     Active Substance: IMATINIB MESYLATE
     Indication: Gastrointestinal stromal tumour
     Dosage: 800 MG (8X100 MG)
     Route: 065

REACTIONS (4)
  - Death [Fatal]
  - Abdominal discomfort [Fatal]
  - Haemoglobin decreased [Fatal]
  - Internal haemorrhage [Fatal]

NARRATIVE: CASE EVENT DATE: 20240114
